FAERS Safety Report 23669495 (Version 1)
Quarter: 2024Q1

REPORT INFORMATION
  Report Type: Spontaneous
  Country: AU (occurrence: AU)
  Receive Date: 20240325
  Receipt Date: 20240325
  Transmission Date: 20240410
  Serious: Yes (Hospitalization, Other)
  Sender: FDA-Public Use
  Company Number: AU-MYLANLABS-2024M1000799

PATIENT
  Sex: Male

DRUGS (8)
  1. CLOZARIL [Suspect]
     Active Substance: CLOZAPINE
     Indication: Schizophrenia
     Dosage: 1162.5 MILLIGRAM
     Route: 048
     Dates: start: 20210316
  2. CLOZARIL [Suspect]
     Active Substance: CLOZAPINE
     Dosage: 500 MILLIGRAM
     Route: 048
     Dates: start: 20210316
  3. PALIPERIDONE [Concomitant]
     Active Substance: PALIPERIDONE
     Dosage: UNK
     Route: 065
  4. PERINDOPRIL [Concomitant]
     Active Substance: PERINDOPRIL
     Dosage: 2.5 MILLIGRAM, QD
     Route: 048
  5. CARVEDILOL [Concomitant]
     Active Substance: CARVEDILOL
     Dosage: 3.125 MILLIGRAM, BID
     Route: 048
  6. MOVICOL [Concomitant]
     Active Substance: POLYETHYLENE GLYCOL 3350\POTASSIUM CHLORIDE\SODIUM BICARBONATE\SODIUM CHLORIDE
     Dosage: 2SACHET, BID
     Route: 048
  7. PANTOPRAZOLE [Concomitant]
     Active Substance: PANTOPRAZOLE
     Dosage: 40 MILLIGRAM, QD
     Route: 048
  8. ATROPINE [Concomitant]
     Active Substance: ATROPINE\ATROPINE SULFATE
     Dosage: 2 DROP
     Route: 048

REACTIONS (2)
  - Electroconvulsive therapy [Unknown]
  - Overdose [Unknown]
